FAERS Safety Report 17044311 (Version 3)
Quarter: 2019Q4

REPORT INFORMATION
  Report Type: Report from Study
  Country: US (occurrence: US)
  Receive Date: 20191118
  Receipt Date: 20191209
  Transmission Date: 20200122
  Serious: Yes (Hospitalization, Other)
  Sender: FDA-Public Use
  Company Number: US-BRISTOL-MYERS SQUIBB COMPANY-BMS-2019-108320

PATIENT
  Age: 50 Year
  Sex: Male
  Weight: 86.1 kg

DRUGS (3)
  1. AGLATIMAGENE BESADENOVEC [Suspect]
     Active Substance: AGLATIMAGENE BESADENOVEC
     Indication: GLIOBLASTOMA
     Dosage: 1 MILLILITER
     Route: 065
     Dates: start: 20190501, end: 20190501
  2. VALACICLOVIR [Suspect]
     Active Substance: VALACYCLOVIR HYDROCHLORIDE
     Indication: GLIOBLASTOMA
     Dosage: 84 GRAM, TOTAL
     Route: 065
     Dates: start: 20190503, end: 20190516
  3. NIVOLUMAB [Suspect]
     Active Substance: NIVOLUMAB
     Indication: GLIOBLASTOMA
     Dosage: 240 MILLIGRAM
     Route: 065

REACTIONS (3)
  - Confusional state [Unknown]
  - Brain oedema [Recovered/Resolved]
  - Craniotomy [Recovered/Resolved with Sequelae]

NARRATIVE: CASE EVENT DATE: 20191012
